FAERS Safety Report 6294394-2 (Version None)
Quarter: 2009Q3

REPORT INFORMATION
  Report Type: 
  Country: None (occurrence: None)
  Receive Date: 20090803
  Receipt Date: 20090720
  Transmission Date: 20100115
  Serious: Yes (Other)
  Sender: FDA-Public Use
  Company Number: US-ROCHE-645605

PATIENT
  Sex: Female

DRUGS (3)
  1. CELLCEPT [Suspect]
     Indication: LUPUS NEPHRITIS
     Dosage: OTHER INDICATION: CNS LUPUS
     Route: 065
     Dates: start: 20020101, end: 20090101
  2. CELLCEPT [Suspect]
     Route: 065
     Dates: start: 20090701
  3. MYCOPHENOLATE MOFETIL [Suspect]
     Indication: LUPUS NEPHRITIS
     Dosage: DRUG: (MYC 500), MANUFACTURED IN INDIA, OTHER INDICATION: CNS LUPUS
     Route: 065
     Dates: start: 20090701, end: 20090701

REACTIONS (6)
  - APHASIA [None]
  - ARTHRALGIA [None]
  - DYSARTHRIA [None]
  - JOINT SWELLING [None]
  - LETHARGY [None]
  - SKIN ULCER [None]
